FAERS Safety Report 24696197 (Version 1)
Quarter: 2024Q4

REPORT INFORMATION
  Report Type: Spontaneous
  Country: CN (occurrence: CN)
  Receive Date: 20241204
  Receipt Date: 20241204
  Transmission Date: 20250114
  Serious: Yes (Other)
  Sender: JIANGSU HENGRUI MEDICINE CO., LTD.
  Company Number: CN-Jiangsu Hengrui Medicine Co., Ltd.-2166455

PATIENT
  Age: 50 Year
  Sex: Male
  Weight: 75 kg

DRUGS (1)
  1. OXALIPLATIN [Suspect]
     Active Substance: OXALIPLATIN
     Indication: Bile duct cancer
     Dates: start: 20241108, end: 20241108

REACTIONS (2)
  - Abdominal discomfort [Recovering/Resolving]
  - Product use in unapproved indication [Unknown]

NARRATIVE: CASE EVENT DATE: 20241108
